FAERS Safety Report 24769396 (Version 1)
Quarter: 2024Q4

REPORT INFORMATION
  Report Type: Spontaneous
  Country: US (occurrence: US)
  Receive Date: 20241224
  Receipt Date: 20241224
  Transmission Date: 20250115
  Serious: Yes (Death, Other)
  Sender: BAXTER
  Company Number: US-BAXTER-2024BAX029691

PATIENT
  Weight: 116 kg

DRUGS (1)
  1. HEPARIN SODIUM [Suspect]
     Active Substance: HEPARIN SODIUM
     Dosage: 25000 UNITS/250 ML (INFUSION)
     Route: 065

REACTIONS (3)
  - Death [Fatal]
  - Underdose [Fatal]
  - Device issue [Unknown]
